FAERS Safety Report 9236312 (Version 7)
Quarter: 2013Q3

REPORT INFORMATION
  Report Type: Spontaneous
  Country: US (occurrence: US)
  Receive Date: 20130417
  Receipt Date: 20130731
  Transmission Date: 20140515
  Serious: Yes (Death, Hospitalization, Other)
  Sender: FDA-Public Use
  Company Number: US-BAXTER-2013BAX012441

PATIENT
  Age: 67 Year
  Sex: Female

DRUGS (4)
  1. DIANEAL LOW CALCIUM [Suspect]
     Indication: PERITONEAL DIALYSIS
     Route: 033
     Dates: start: 201204
  2. DIANEAL LOW CALCIUM [Suspect]
     Indication: PERITONEAL DIALYSIS
     Route: 033
     Dates: start: 201204
  3. DIANEAL LOW CALCIUM [Suspect]
     Indication: PERITONEAL DIALYSIS
     Route: 033
     Dates: start: 201204
  4. DIANEAL PD2 [Suspect]
     Indication: PERITONEAL DIALYSIS
     Route: 033

REACTIONS (12)
  - Cardiac failure [Fatal]
  - Convulsion [Recovering/Resolving]
  - Myocardial infarction [Recovering/Resolving]
  - Thrombosis [Recovering/Resolving]
  - Dizziness [Recovering/Resolving]
  - Pulmonary oedema [Recovering/Resolving]
  - Multimorbidity [Unknown]
  - Nausea [Recovering/Resolving]
  - Vomiting [Recovering/Resolving]
  - Fluid overload [Recovering/Resolving]
  - Dyspnoea [Recovering/Resolving]
  - Fluid retention [Unknown]
